FAERS Safety Report 6297148-6 (Version None)
Quarter: 2009Q3

REPORT INFORMATION
  Report Type: 
  Country: None (occurrence: None)
  Receive Date: 20090805
  Receipt Date: 20070522
  Transmission Date: 20100115
  Serious: Yes (Other)
  Sender: FDA-Public Use
  Company Number: US-ASTRAZENECA-2006UW03312

PATIENT
  Age: 49 Year
  Sex: Female
  Weight: 131.4 kg

DRUGS (24)
  1. SEROQUEL [Suspect]
     Indication: DEPRESSION
     Route: 048
     Dates: start: 19990101
  2. SEROQUEL [Suspect]
     Indication: BIPOLAR DISORDER
     Route: 048
     Dates: start: 19990101
  3. SEROQUEL [Suspect]
     Dosage: 100MG -300MG
     Route: 048
     Dates: start: 19990101
  4. SEROQUEL [Suspect]
     Dosage: 100MG -300MG
     Route: 048
     Dates: start: 19990101
  5. ZYPREXA [Concomitant]
     Dates: start: 20000101, end: 20010101
  6. ACETAMINOPHEN AND HYDROCODONE BITARTRATE [Concomitant]
     Dosage: 7.5MG -650MG
     Route: 048
     Dates: start: 19990413
  7. TRAZODONE HCL [Concomitant]
     Dosage: 50MG -150MG
     Route: 048
     Dates: start: 19990804
  8. PERPHENAZINE [Concomitant]
     Route: 048
     Dates: start: 19990804
  9. NORVASC [Concomitant]
     Route: 048
     Dates: start: 19991201
  10. VALTREX [Concomitant]
     Route: 048
     Dates: start: 20001108
  11. ACTOS [Concomitant]
     Dosage: 30MG -45 MG
     Route: 048
     Dates: start: 20001207
  12. PRAVACHOL [Concomitant]
     Dosage: 20MG -40MG
     Route: 048
     Dates: start: 20010201
  13. ESTRADIOL [Concomitant]
     Route: 048
     Dates: start: 20010402
  14. CELEXA [Concomitant]
     Route: 048
     Dates: start: 20010823
  15. FUROSEMIDE [Concomitant]
     Route: 048
     Dates: start: 20020403
  16. HYZAAR [Concomitant]
     Dosage: 50MG -12.5 MG
     Route: 048
     Dates: start: 20020904
  17. NEURONTIN [Concomitant]
     Indication: ANXIETY
     Route: 048
     Dates: start: 20020711
  18. GEODON [Concomitant]
     Route: 048
     Dates: start: 20030111
  19. PREMARIN [Concomitant]
     Dosage: 0.45MG -0.625MG
     Route: 048
  20. BUPROPION HCL [Concomitant]
     Dosage: 150MG -300MG
     Route: 048
  21. OXYCOD [Concomitant]
     Dosage: 5MG -325MG
     Route: 048
  22. ZOCOR [Concomitant]
     Route: 048
     Dates: start: 20051010
  23. ELAVIL [Concomitant]
     Route: 048
     Dates: start: 20000110
  24. PROZAC [Concomitant]
     Route: 048
     Dates: start: 20000110

REACTIONS (4)
  - DIABETES MELLITUS [None]
  - DIABETIC NEUROPATHY [None]
  - TYPE 2 DIABETES MELLITUS [None]
  - WEIGHT INCREASED [None]
